FAERS Safety Report 5249086-5 (Version None)
Quarter: 2007Q1

REPORT INFORMATION
  Report Type: 
  Country: None (occurrence: None)
  Receive Date: 20070228
  Receipt Date: 20060728
  Transmission Date: 20070707
  Serious: No
  Sender: FDA-Public Use
  Company Number: US-GLAXOSMITHKLINE-A0613957A

PATIENT
  Age: 54 Year
  Sex: Female

DRUGS (2)
  1. VALTREX [Suspect]
     Dosage: 1000MG THREE TIMES PER DAY
     Route: 048
  2. ADVIL [Concomitant]

REACTIONS (1)
  - NAIL DISCOLOURATION [None]
